FAERS Safety Report 7814359 (Version 7)
Quarter: 2013Q1

REPORT INFORMATION
  Report Type: Spontaneous
  Country: GB (occurrence: GB)
  Receive Date: 20110216
  Receipt Date: 20130117
  Transmission Date: 20140127
  Serious: Yes (Other)
  Sender: FDA-Public Use
  Company Number: GB-PFIZER INC-2011032969

PATIENT
  Age: 29 Year
  Sex: Female
  Weight: 64 kg

DRUGS (5)
  1. PREGABALIN [Suspect]
     Indication: PAIN
     Dosage: 2 CAPSULES TWICE DAILY
     Route: 065
     Dates: start: 20080815
  2. OMEPRAZOLE [Suspect]
     Indication: PROPHYLAXIS AGAINST GASTROINTESTINAL ULCER
     Dosage: 20 MG, DAILY
     Route: 065
     Dates: start: 20081016
  3. HYDROXOCOBALAMIN [Suspect]
     Indication: VITAMIN B12 DEFICIENCY
     Dosage: 3 DF, MONTHLY
     Route: 065
     Dates: start: 20091216
  4. CO-CODAMOL [Suspect]
     Indication: PAIN
     Dosage: 2 DF, AS NEEDED
     Route: 065
     Dates: start: 20090106
  5. FOLIC ACID [Suspect]
     Indication: PREGNANCY
     Dosage: 1 DF, 1X/DAY
     Route: 065
     Dates: start: 200905

REACTIONS (4)
  - Forceps delivery [Unknown]
  - Haemorrhage in pregnancy [Unknown]
  - Infection [Unknown]
  - Pelvic pain [Unknown]
